FAERS Safety Report 9347019 (Version 1)
Quarter: 2013Q2

REPORT INFORMATION
  Report Type: Spontaneous
  Country: US (occurrence: US)
  Receive Date: 20130613
  Receipt Date: 20130613
  Transmission Date: 20140414
  Serious: Yes (Death, Life-Threatening, Other)
  Sender: FDA-Public Use
  Company Number: US-ACTAVIS-2013-10206

PATIENT
  Sex: 0

DRUGS (2)
  1. PHENYTOIN (AMALLC) [Suspect]
     Indication: PROPHYLAXIS
     Dosage: UNK
     Route: 048
  2. DILANTIN /00017401/ [Suspect]
     Indication: PROPHYLAXIS
     Dosage: UNK
     Route: 042

REACTIONS (12)
  - Hypersensitivity [Fatal]
  - Pruritus [Fatal]
  - Rash [Fatal]
  - Renal failure [Fatal]
  - Mental status changes [Fatal]
  - Unresponsive to stimuli [Fatal]
  - Urticaria [Fatal]
  - Blister [Fatal]
  - Haemorrhage [Fatal]
  - Skin exfoliation [Fatal]
  - Condition aggravated [Fatal]
  - Cerebrovascular accident [None]
